FAERS Safety Report 25461597 (Version 2)
Quarter: 2025Q2

REPORT INFORMATION
  Report Type: Spontaneous
  Country: IT (occurrence: IT)
  Receive Date: 20250620
  Receipt Date: 20250626
  Transmission Date: 20250717
  Serious: Yes (Other)
  Sender: MYLAN
  Company Number: IT-MYLANLABS-2025M1052304

PATIENT
  Age: 48 Year
  Sex: Female

DRUGS (44)
  1. DOCETAXEL [Suspect]
     Active Substance: DOCETAXEL
     Indication: Breast cancer
     Dates: start: 2007
  2. DOCETAXEL [Suspect]
     Active Substance: DOCETAXEL
     Route: 065
     Dates: start: 2007
  3. DOCETAXEL [Suspect]
     Active Substance: DOCETAXEL
     Route: 065
     Dates: start: 2007
  4. DOCETAXEL [Suspect]
     Active Substance: DOCETAXEL
     Dates: start: 2007
  5. CAPECITABINE [Suspect]
     Active Substance: CAPECITABINE
     Indication: Breast cancer metastatic
  6. CAPECITABINE [Suspect]
     Active Substance: CAPECITABINE
     Route: 065
  7. CAPECITABINE [Suspect]
     Active Substance: CAPECITABINE
     Route: 065
  8. CAPECITABINE [Suspect]
     Active Substance: CAPECITABINE
  9. EXEMESTANE [Suspect]
     Active Substance: EXEMESTANE
     Indication: Breast cancer metastatic
  10. EXEMESTANE [Suspect]
     Active Substance: EXEMESTANE
     Route: 065
  11. EXEMESTANE [Suspect]
     Active Substance: EXEMESTANE
     Route: 065
  12. EXEMESTANE [Suspect]
     Active Substance: EXEMESTANE
  13. CARBOPLATIN [Suspect]
     Active Substance: CARBOPLATIN
     Indication: Breast cancer metastatic
  14. CARBOPLATIN [Suspect]
     Active Substance: CARBOPLATIN
     Route: 065
  15. CARBOPLATIN [Suspect]
     Active Substance: CARBOPLATIN
     Route: 065
  16. CARBOPLATIN [Suspect]
     Active Substance: CARBOPLATIN
  17. CYCLOPHOSPHAMIDE [Suspect]
     Active Substance: CYCLOPHOSPHAMIDE
     Indication: Breast cancer
     Dates: start: 2007
  18. CYCLOPHOSPHAMIDE [Suspect]
     Active Substance: CYCLOPHOSPHAMIDE
     Route: 065
     Dates: start: 2007
  19. CYCLOPHOSPHAMIDE [Suspect]
     Active Substance: CYCLOPHOSPHAMIDE
     Route: 065
     Dates: start: 2007
  20. CYCLOPHOSPHAMIDE [Suspect]
     Active Substance: CYCLOPHOSPHAMIDE
     Dates: start: 2007
  21. DOXORUBICIN [Suspect]
     Active Substance: DOXORUBICIN
     Indication: Breast cancer
     Dates: start: 2007
  22. DOXORUBICIN [Suspect]
     Active Substance: DOXORUBICIN
     Route: 065
     Dates: start: 2007
  23. DOXORUBICIN [Suspect]
     Active Substance: DOXORUBICIN
     Route: 065
     Dates: start: 2007
  24. DOXORUBICIN [Suspect]
     Active Substance: DOXORUBICIN
     Dates: start: 2007
  25. FULVESTRANT [Suspect]
     Active Substance: FULVESTRANT
     Indication: Breast cancer metastatic
  26. FULVESTRANT [Suspect]
     Active Substance: FULVESTRANT
     Route: 065
  27. FULVESTRANT [Suspect]
     Active Substance: FULVESTRANT
     Route: 065
  28. FULVESTRANT [Suspect]
     Active Substance: FULVESTRANT
  29. TAXOL [Suspect]
     Active Substance: PACLITAXEL
     Indication: Breast cancer metastatic
  30. TAXOL [Suspect]
     Active Substance: PACLITAXEL
     Route: 065
  31. TAXOL [Suspect]
     Active Substance: PACLITAXEL
     Route: 065
  32. TAXOL [Suspect]
     Active Substance: PACLITAXEL
  33. TAMOXIFEN [Suspect]
     Active Substance: TAMOXIFEN
     Indication: Breast cancer
  34. TAMOXIFEN [Suspect]
     Active Substance: TAMOXIFEN
     Route: 065
  35. TAMOXIFEN [Suspect]
     Active Substance: TAMOXIFEN
     Route: 065
  36. TAMOXIFEN [Suspect]
     Active Substance: TAMOXIFEN
  37. TRASTUZUMAB [Suspect]
     Active Substance: TRASTUZUMAB
     Indication: Breast cancer metastatic
  38. TRASTUZUMAB [Suspect]
     Active Substance: TRASTUZUMAB
     Route: 065
  39. TRASTUZUMAB [Suspect]
     Active Substance: TRASTUZUMAB
     Route: 065
  40. TRASTUZUMAB [Suspect]
     Active Substance: TRASTUZUMAB
  41. ERIBULIN [Concomitant]
     Active Substance: ERIBULIN
     Indication: Breast cancer metastatic
  42. ERIBULIN [Concomitant]
     Active Substance: ERIBULIN
     Route: 065
  43. ERIBULIN [Concomitant]
     Active Substance: ERIBULIN
     Route: 065
  44. ERIBULIN [Concomitant]
     Active Substance: ERIBULIN

REACTIONS (2)
  - Drug ineffective [Unknown]
  - Disease progression [Unknown]
